FAERS Safety Report 6145788-7 (Version None)
Quarter: 2009Q2

REPORT INFORMATION
  Report Type: 
  Country: None (occurrence: None)
  Receive Date: 20090407
  Receipt Date: 20090331
  Transmission Date: 20091009
  Serious: Yes (Other)
  Sender: FDA-Public Use
  Company Number: IE-ELI_LILLY_AND_COMPANY-IE200904000098

PATIENT
  Age: 63 Year
  Sex: Male

DRUGS (1)
  1. BYETTA [Suspect]
     Indication: DIABETES MELLITUS
     Dosage: 5 UG, UNKNOWN
     Route: 065

REACTIONS (5)
  - ABDOMINAL PAIN [None]
  - ANOREXIA [None]
  - MALAISE [None]
  - NAUSEA [None]
  - PANCREATITIS [None]
